FAERS Safety Report 19463149 (Version 2)
Quarter: 2021Q3

REPORT INFORMATION
  Report Type: Spontaneous
  Country: JP (occurrence: JP)
  Receive Date: 20210625
  Receipt Date: 20210701
  Transmission Date: 20211014
  Serious: Yes (Hospitalization, Other)
  Sender: FDA-Public Use
  Company Number: JP-GLAXOSMITHKLINE-JP2021127194

PATIENT
  Age: 70 Year
  Sex: Female

DRUGS (2)
  1. BONALON [Concomitant]
     Active Substance: ALENDRONATE SODIUM
  2. BENLYSTA [Suspect]
     Active Substance: BELIMUMAB
     Dosage: 200 MG, WE

REACTIONS (2)
  - Fall [Unknown]
  - Spinal compression fracture [Not Recovered/Not Resolved]

NARRATIVE: CASE EVENT DATE: 202106
